FAERS Safety Report 8265216-5 (Version None)
Quarter: 2012Q2

REPORT INFORMATION
  Report Type: 
  Country: None (occurrence: None)
  Receive Date: 20120406
  Receipt Date: 20120328
  Transmission Date: 20120825
  Serious: Yes (Other)
  Sender: FDA-Public Use
  Company Number: JP-PFIZER INC-2012078803

PATIENT
  Age: 81 Year
  Sex: Male

DRUGS (2)
  1. METHYLPREDNISOLONE [Suspect]
     Indication: RETINAL ARTERY OCCLUSION
  2. METHYLPREDNISOLONE [Suspect]
     Indication: SYMPATHETIC OPHTHALMIA
     Dosage: 1000 MG/DAY
     Dates: start: 20100917

REACTIONS (2)
  - GLAUCOMA [None]
  - LACUNAR INFARCTION [None]
